FAERS Safety Report 7298133-8 (Version None)
Quarter: 2011Q1

REPORT INFORMATION
  Report Type: 
  Country: None (occurrence: None)
  Receive Date: 20110217
  Receipt Date: 20110210
  Transmission Date: 20110831
  Serious: Yes (Other)
  Sender: FDA-Public Use
  Company Number: CA-JNJFOC-20100600266

PATIENT
  Sex: Female
  Weight: 54 kg

DRUGS (9)
  1. TYLENOL W/ CODEINE NO. 3 [Concomitant]
  2. MIRTAZAPINE [Concomitant]
  3. AZATHIOPRINE [Concomitant]
  4. RAMIPRIL [Concomitant]
  5. LORAZEPAM [Concomitant]
  6. REMICADE [Suspect]
     Indication: CROHN'S DISEASE
     Route: 042
  7. VITAMIN TAB [Concomitant]
  8. TRAZODONE [Concomitant]
  9. WELLBUTRIN [Concomitant]

REACTIONS (1)
  - SQUAMOUS CELL CARCINOMA [None]
